FAERS Safety Report 7197802-8 (Version None)
Quarter: 2010Q4

REPORT INFORMATION
  Report Type: 
  Country: None (occurrence: None)
  Receive Date: 20101227
  Receipt Date: 20101222
  Transmission Date: 20110411
  Serious: Yes (Life-Threatening, Other)
  Sender: FDA-Public Use
  Company Number: JP-ASTRAZENECA-2010SE60281

PATIENT
  Age: 19 Year
  Sex: Female

DRUGS (1)
  1. XYLOCAINE [Suspect]
     Indication: LOCAL ANAESTHESIA
     Dosage: DOSE UNKNOWN
     Route: 065

REACTIONS (2)
  - ARTERIOSPASM CORONARY [None]
  - CARDIO-RESPIRATORY ARREST [None]
